FAERS Safety Report 25205117 (Version 1)
Quarter: 2025Q2

REPORT INFORMATION
  Report Type: Spontaneous
  Country: US (occurrence: None)
  Receive Date: 20250416
  Receipt Date: 20250416
  Transmission Date: 20250717
  Serious: No
  Sender: BEIGENE
  Company Number: US-BEIGENE-BGN-2025-005879

PATIENT

DRUGS (1)
  1. BRUKINSA [Suspect]
     Active Substance: ZANUBRUTINIB
     Indication: Chronic lymphocytic leukaemia
     Dosage: 320 MILLIGRAM, QD

REACTIONS (2)
  - Malaise [Unknown]
  - Wrong technique in product usage process [Unknown]
